FAERS Safety Report 18456990 (Version 2)
Quarter: 2021Q4

REPORT INFORMATION
  Report Type: Spontaneous
  Country: US (occurrence: US)
  Receive Date: 20201103
  Receipt Date: 20211004
  Transmission Date: 20220303
  Serious: Yes (Life-Threatening, Hospitalization, Other)
  Sender: FDA-Public Use
  Company Number: US-LUPIN PHARMACEUTICALS INC.-2020-08252

PATIENT
  Age: 28 Year
  Sex: Female

DRUGS (1)
  1. METFORMIN [Suspect]
     Active Substance: METFORMIN HYDROCHLORIDE
     Indication: Product used for unknown indication
     Dosage: 50 TABLETS, UNK
     Route: 065

REACTIONS (11)
  - Intentional overdose [Unknown]
  - Toxicity to various agents [Recovering/Resolving]
  - Renal failure [Unknown]
  - Metabolic acidosis [Recovered/Resolved]
  - Depressed level of consciousness [Unknown]
  - Haemodynamic instability [Unknown]
  - Distributive shock [Unknown]
  - Rhabdomyolysis [Unknown]
  - Acute respiratory distress syndrome [Recovering/Resolving]
  - Abdominal compartment syndrome [Unknown]
  - Respiratory failure [Recovering/Resolving]
